FAERS Safety Report 23946741 (Version 1)
Quarter: 2024Q2

REPORT INFORMATION
  Report Type: Spontaneous
  Country: US (occurrence: US)
  Receive Date: 20240606
  Receipt Date: 20240606
  Transmission Date: 20240715
  Serious: No
  Sender: FDA-Public Use
  Company Number: US-PFIZER INC-202400187446

PATIENT
  Age: 54 Year
  Sex: Female

DRUGS (8)
  1. XELJANZ XR [Suspect]
     Active Substance: TOFACITINIB CITRATE
     Dosage: 11 MG
  2. GEMFIBROZIL [Concomitant]
     Active Substance: GEMFIBROZIL
     Dosage: UNK
  3. SOLIFENACIN [Concomitant]
     Active Substance: SOLIFENACIN
  4. GABAPENTIN [Concomitant]
     Active Substance: GABAPENTIN
  5. ESTRADIOL [Concomitant]
     Active Substance: ESTRADIOL
  6. CELEBREX [Concomitant]
     Active Substance: CELECOXIB
  7. MISOPROSTOL [Concomitant]
     Active Substance: MISOPROSTOL
  8. LOSARTAN [Concomitant]
     Active Substance: LOSARTAN

REACTIONS (2)
  - General physical health deterioration [Unknown]
  - Condition aggravated [Unknown]
